FAERS Safety Report 11038860 (Version 2)
Quarter: 2015Q2

REPORT INFORMATION
  Report Type: Spontaneous
  Country: JP (occurrence: JP)
  Receive Date: 20150416
  Receipt Date: 20150529
  Transmission Date: 20150821
  Serious: Yes (Other)
  Sender: FDA-Public Use
  Company Number: JP-PFIZER INC-2015128761

PATIENT
  Age: 85 Year
  Sex: Male
  Weight: 42 kg

DRUGS (15)
  1. PREDONINE [Suspect]
     Active Substance: PREDNISOLONE\PREDNISOLONE ACETATE\PREDNISOLONE SODIUM SUCCINATE
     Indication: PYODERMA GANGRENOSUM
     Dosage: 15 MG IN THE MORNING AND 10 MG IN THE EVENING, 2X/DAY
     Route: 048
     Dates: start: 20141210, end: 20150408
  2. MUCOSTA [Concomitant]
     Active Substance: REBAMIPIDE
     Indication: CHRONIC GASTRITIS
     Dosage: 100 MG, 3X/DAY
     Route: 048
     Dates: start: 20141210, end: 20150408
  3. BAKTAR [Concomitant]
     Active Substance: SULFAMETHOXAZOLE\TRIMETHOPRIM
     Indication: ANTIFUNGAL PROPHYLAXIS
     Dosage: 1 DF, 1X/DAY
     Route: 048
     Dates: start: 20141210, end: 20150408
  4. SLOW-K [Concomitant]
     Active Substance: POTASSIUM CHLORIDE
     Indication: HYPOKALAEMIA
     Dosage: 600 MG, 1X/DAY
     Route: 048
     Dates: start: 20150204, end: 20150220
  5. ISODINE SUGAR [Concomitant]
     Indication: WOUND TREATMENT
     Dosage: UNK
     Dates: start: 20141210, end: 20150408
  6. ACTOSIN [Concomitant]
     Indication: WOUND TREATMENT
     Dosage: UNK
     Dates: start: 20141210, end: 20150408
  7. ENTERONON-R [Concomitant]
     Active Substance: PROBIOTICS NOS
     Indication: PROPHYLAXIS AGAINST DIARRHOEA
     Dosage: 1 G, 3X/DAY
     Route: 048
     Dates: start: 20141210, end: 20150408
  8. VFEND [Suspect]
     Active Substance: VORICONAZOLE
     Indication: BRONCHOPULMONARY ASPERGILLOSIS
     Dosage: 250 MG, 2X/DAY
     Route: 041
     Dates: start: 20150210, end: 20150213
  9. URSO [Concomitant]
     Active Substance: URSODIOL
     Indication: HEPATIC FUNCTION ABNORMAL
     Dosage: 200 MG, 3X/DAY
     Dates: start: 20141210, end: 20150408
  10. TAKEPRON [Concomitant]
     Active Substance: LANSOPRAZOLE
     Indication: PROPHYLAXIS AGAINST GASTROINTESTINAL ULCER
     Dosage: 15 MG, 1X/DAY
     Route: 048
     Dates: start: 20141210, end: 20150408
  11. BONALON [Concomitant]
     Active Substance: ALENDRONATE SODIUM
     Indication: OSTEOPOROSIS PROPHYLAXIS
     Dosage: 35 MG, WEEKLY
     Route: 048
     Dates: start: 20141210, end: 20150408
  12. DAI-KENCHU-TO [Concomitant]
     Active Substance: MALTOSE
     Indication: GASTROINTESTINAL HYPOMOTILITY
     Dosage: 2.5 G, 3X/DAY
     Route: 048
     Dates: start: 20150204, end: 20150311
  13. LECTISOL [Concomitant]
     Active Substance: DAPSONE
     Indication: PYODERMA GANGRENOSUM
     Dosage: 50 MG, 1X/DAY
     Route: 048
     Dates: start: 20150128, end: 20150318
  14. SALCOAT [Concomitant]
     Active Substance: BECLOMETHASONE DIPROPIONATE
     Indication: WOUND TREATMENT
     Dosage: UNK
     Dates: start: 20141210, end: 20150408
  15. CRAVIT [Concomitant]
     Active Substance: LEVOFLOXACIN
     Indication: INFECTION PROPHYLAXIS
     Dosage: 500 MG, 1X/DAY
     Route: 048
     Dates: start: 20150211, end: 20150331

REACTIONS (1)
  - Delirium [Recovered/Resolved]

NARRATIVE: CASE EVENT DATE: 20150211
